FAERS Safety Report 9632389 (Version 2)
Quarter: 2013Q4

REPORT INFORMATION
  Report Type: Report from Study
  Country: FR (occurrence: FR)
  Receive Date: 20131018
  Receipt Date: 20131018
  Transmission Date: 20140711
  Serious: Yes (Other)
  Sender: FDA-Public Use
  Company Number: FR-SA-CLOF-1002418

PATIENT
  Age: 57 Year
  Sex: Male
  Weight: 78 kg

DRUGS (34)
  1. CLOFARABINE [Suspect]
     Indication: ACUTE MYELOID LEUKAEMIA
     Dosage: 300 MG, UNK
     Route: 042
     Dates: start: 20120721, end: 20120725
  2. CLOFARABINE [Suspect]
     Indication: ACUTE MYELOID LEUKAEMIA
     Dosage: UNK, FIRST CONSOLIDATION CYCLE
     Route: 065
     Dates: end: 20120820
  3. CLOFARABINE [Suspect]
     Indication: ACUTE MYELOID LEUKAEMIA
     Dosage: UNK, SECOND CONSOLIDATION CYCLE
     Route: 065
     Dates: start: 20120920
  4. CLOFARABINE [Suspect]
     Indication: ACUTE MYELOID LEUKAEMIA
     Dosage: 300 MG, CONSOLIDATION TREATMENT 3
     Route: 042
     Dates: start: 20121104, end: 20121108
  5. CYTARABINE [Suspect]
     Indication: ACUTE MYELOID LEUKAEMIA
     Dosage: 1000 MG, UNK
     Route: 042
     Dates: start: 20120720, end: 20120724
  6. CYTARABINE [Suspect]
     Indication: ACUTE MYELOID LEUKAEMIA
     Dosage: 1000 MG, UNK
     Route: 042
     Dates: start: 20120720, end: 20120724
  7. CYTARABINE [Suspect]
     Indication: ACUTE MYELOID LEUKAEMIA
     Dosage: UNK, FIRST CONSOLIDATION CYCLE
     Route: 065
     Dates: end: 20120820
  8. CYTARABINE [Suspect]
     Indication: ACUTE MYELOID LEUKAEMIA
     Dosage: UNK, FIRST CONSOLIDATION CYCLE
     Route: 065
     Dates: end: 20120820
  9. CYTARABINE [Suspect]
     Indication: ACUTE MYELOID LEUKAEMIA
     Dosage: UNK, SECOND CONSOLIDATION CYCLE
     Route: 065
     Dates: start: 20120920
  10. CYTARABINE [Suspect]
     Indication: ACUTE MYELOID LEUKAEMIA
     Dosage: UNK, SECOND CONSOLIDATION CYCLE
     Route: 065
     Dates: start: 20120920
  11. CYTARABINE [Suspect]
     Indication: ACUTE MYELOID LEUKAEMIA
     Dosage: 10000 MG, CONSOLIDATION TREATMENT 3
     Route: 042
     Dates: start: 20121104, end: 20121107
  12. CYTARABINE [Suspect]
     Indication: ACUTE MYELOID LEUKAEMIA
     Dosage: 10000 MG, CONSOLIDATION TREATMENT 3
     Route: 042
     Dates: start: 20121104, end: 20121107
  13. FILGRASTIM [Suspect]
     Indication: ACUTE MYELOID LEUKAEMIA
     Dosage: 1800 MCG, UNK
     Route: 042
     Dates: start: 20120720, end: 20120725
  14. FILGRASTIM [Suspect]
     Indication: ACUTE MYELOID LEUKAEMIA
     Dosage: 1800 MCG, UNK
     Route: 042
     Dates: start: 20120720, end: 20120725
  15. FILGRASTIM [Suspect]
     Indication: ACUTE MYELOID LEUKAEMIA
     Dosage: UNK , QD
     Route: 059
     Dates: start: 20121005
  16. FILGRASTIM [Suspect]
     Indication: ACUTE MYELOID LEUKAEMIA
     Dosage: UNK , QD
     Route: 059
     Dates: start: 20121005
  17. HEPARIN [Concomitant]
     Dosage: 7000 U/L, QD DOSE:7000 UNIT(S)/LITRE
  18. FOLINIC ACID [Concomitant]
     Dosage: 50 MG, 3X/W
  19. FOLINIC ACID [Concomitant]
     Dosage: 25 MG, QD
     Route: 065
  20. TRIFLUCAN [Concomitant]
     Dosage: 200 MG, QD
  21. ZOPHREN [Concomitant]
     Dosage: UNK (1 AMPULE)
  22. LARGACTIL [Concomitant]
     Dosage: UNKX QD (1 AMPULE)
  23. PLITICAN [Concomitant]
     Dosage: UNKX TID  (1 AMPULE)
  24. FUNGIZONE [Concomitant]
     Dosage: UNKX1CACHET X 6 TIMES PER DAY
     Route: 048
  25. DELURSAN [Concomitant]
     Dosage: UNK
  26. ZELITREX [Concomitant]
     Dosage: 500 MG, BID
  27. TACROLIMUS [Concomitant]
     Dosage: UNK
  28. CELLCEPT [Concomitant]
     Dosage: UNK
  29. METHOTREXATE [Concomitant]
     Dosage: UNK
  30. SOLU-MEDROL [Concomitant]
     Dosage: UNK
  31. MOPRAL [Concomitant]
     Dosage: UNK, QD
  32. DEXERYL [Concomitant]
     Dosage: UNK, 3 APPLICATIONS
  33. SPASFON [Concomitant]
     Dosage: 2 TABLETS THREE TIMES PER DAY, IF NEEDED
  34. DOLIPRANE [Concomitant]
     Dosage: 1 G FOUR TIMES PER DAY IF NEEDED

REACTIONS (15)
  - Toxic skin eruption [Recovered/Resolved]
  - Shock [Unknown]
  - Proctitis [Recovered/Resolved]
  - Hepatocellular injury [Recovered/Resolved]
  - Cholestasis [Recovered/Resolved]
  - Neutropenic colitis [Unknown]
  - Colitis [Recovered/Resolved]
  - Dermatitis exfoliative [Recovering/Resolving]
  - Dermatitis bullous [Recovering/Resolving]
  - Venoocclusive liver disease [Recovered/Resolved]
  - Staphylococcal infection [Unknown]
  - Escherichia infection [Unknown]
  - Pyrexia [Recovering/Resolving]
  - Oedema [Recovering/Resolving]
  - Hyperthermia [Recovered/Resolved]
